FAERS Safety Report 6826075-8 (Version None)
Quarter: 2010Q3

REPORT INFORMATION
  Report Type: 
  Country: None (occurrence: None)
  Receive Date: 20100708
  Receipt Date: 20100708
  Transmission Date: 20110219
  Serious: Yes (Life-Threatening, Hospitalization, Disabling, Other)
  Sender: FDA-Public Use
  Company Number: None

PATIENT
  Sex: Male
  Weight: 87.0906 kg

DRUGS (2)
  1. MULTAQ [Suspect]
     Indication: ATRIAL FIBRILLATION
     Dosage: 400 MG TWICE DAILY PO
     Route: 048
     Dates: start: 20100201, end: 20100707
  2. ATIVAN [Concomitant]

REACTIONS (3)
  - DRUG INTERACTION [None]
  - DYSPNOEA [None]
  - NERVOUSNESS [None]
